FAERS Safety Report 9939777 (Version 1)
Quarter: 2014Q1

REPORT INFORMATION
  Report Type: Spontaneous
  Country: US (occurrence: US)
  Receive Date: 20140303
  Receipt Date: 20140303
  Transmission Date: 20141002
  Serious: No
  Sender: FDA-Public Use
  Company Number: US-ABBVIE-13P-163-1033401-00

PATIENT
  Age: 71 Year
  Sex: Female
  Weight: 83.99 kg

DRUGS (6)
  1. HUMIRA [Suspect]
     Indication: PSORIASIS
     Dates: start: 2011, end: 2011
  2. HUMIRA [Suspect]
     Dates: start: 2011
  3. HUMIRA [Suspect]
     Dates: start: 201210
  4. UNKNOWN TOPICAL MEDICATION [Concomitant]
     Indication: PSORIASIS
     Route: 061
  5. ZOLOFT [Concomitant]
     Indication: PRODUCT USED FOR UNKNOWN INDICATION
  6. UNKNOWN MEDICATION [Concomitant]
     Indication: HYPERTENSION

REACTIONS (5)
  - Incorrect route of drug administration [Recovered/Resolved]
  - Rash [Not Recovered/Not Resolved]
  - Drug ineffective [Not Recovered/Not Resolved]
  - Blood blister [Not Recovered/Not Resolved]
  - Wrong technique in drug usage process [Recovered/Resolved]
